FAERS Safety Report 8077981-0 (Version None)
Quarter: 2012Q1

REPORT INFORMATION
  Report Type: 
  Country: None (occurrence: None)
  Receive Date: 20120127
  Receipt Date: 20110106
  Transmission Date: 20120608
  Serious: No
  Sender: FDA-Public Use
  Company Number: US-ABBOTT-11P-163-0695656-00

PATIENT
  Age: 38 Year
  Sex: Female

DRUGS (3)
  1. PLAQUENIL [Concomitant]
     Indication: PRODUCT USED FOR UNKNOWN INDICATION
     Route: 048
  2. METHOTREXATE [Concomitant]
     Indication: PRODUCT USED FOR UNKNOWN INDICATION
  3. HUMIRA [Suspect]
     Indication: RHEUMATOID ARTHRITIS
     Dates: start: 20080701, end: 20101201

REACTIONS (7)
  - NASOPHARYNGITIS [None]
  - PRODUCTIVE COUGH [None]
  - DIARRHOEA [None]
  - SINUS CONGESTION [None]
  - RESPIRATORY TRACT CONGESTION [None]
  - GASTROENTERITIS VIRAL [None]
  - VOMITING [None]
